FAERS Safety Report 5465618-6 (Version None)
Quarter: 2007Q3

REPORT INFORMATION
  Report Type: 
  Country: None (occurrence: None)
  Receive Date: 20070924
  Receipt Date: 20070917
  Transmission Date: 20080115
  Serious: Yes (Life-Threatening)
  Sender: FDA-Public Use
  Company Number: GB-AVENTIS-200717321GDDC

PATIENT
  Age: 64 Year
  Sex: Female

DRUGS (3)
  1. LANTUS [Suspect]
     Route: 058
  2. APIDRA [Suspect]
     Route: 058
  3. AUTOPEN INSULIN INJECTION PEN [Suspect]
     Route: 058

REACTIONS (4)
  - HYPERGLYCAEMIA [None]
  - HYPOGLYCAEMIA [None]
  - PHARMACEUTICAL PRODUCT COMPLAINT [None]
  - WRONG DRUG ADMINISTERED [None]
